FAERS Safety Report 4404747-2 (Version None)
Quarter: 2004Q3

REPORT INFORMATION
  Report Type: 
  Country: None (occurrence: None)
  Receive Date: 20040715
  Receipt Date: 20040630
  Transmission Date: 20050211
  Serious: Yes (Other)
  Sender: FDA-Public Use
  Company Number: 2004IM000729

PATIENT
  Age: 23 Year
  Sex: Male
  Weight: 60.7 kg

DRUGS (5)
  1. ACTIMMUNE [Suspect]
     Indication: SKIN PAPILLOMA
     Dosage: 100 UG; SUBCUTANEOUS
     Route: 058
     Dates: start: 20031001, end: 20040624
  2. BACTRIM [Concomitant]
  3. NEULASTA [Concomitant]
  4. PROCRIT [Concomitant]
  5. IMMUNE GLOBULIN INTRAVENOUS (HUMAN) [Concomitant]

REACTIONS (5)
  - NEPHRITIS [None]
  - POLYDIPSIA [None]
  - POLYURIA [None]
  - RENAL FAILURE ACUTE [None]
  - WEIGHT DECREASED [None]
